FAERS Safety Report 8206291-3 (Version None)
Quarter: 2012Q1

REPORT INFORMATION
  Report Type: 
  Country: None (occurrence: None)
  Receive Date: 20120313
  Receipt Date: 20120305
  Transmission Date: 20120608
  Serious: Yes (Other)
  Sender: FDA-Public Use
  Company Number: PHHY2012BR020127

PATIENT
  Sex: Female
  Weight: 73 kg

DRUGS (2)
  1. PROPAFENONE HYDROCHLORIDE [Concomitant]
     Indication: ARRHYTHMIA
     Dosage: 1 DF, DAILY
     Route: 048
  2. FORMOTEROL FUMARATE [Suspect]
     Indication: LUNG DISORDER

REACTIONS (3)
  - EYE PAIN [None]
  - EYE HAEMORRHAGE [None]
  - RETINAL VEIN OCCLUSION [None]
